FAERS Safety Report 24091115 (Version 1)
Quarter: 2024Q3

REPORT INFORMATION
  Report Type: Spontaneous
  Country: US (occurrence: None)
  Receive Date: 20240713
  Receipt Date: 20240713
  Transmission Date: 20241017
  Serious: Yes (unspecified)
  Sender: Public
  Company Number: None

PATIENT
  Age: 46 Year
  Sex: Male

DRUGS (1)
  1. CABENUVA [Suspect]
     Active Substance: CABOTEGRAVIR\RILPIVIRINE

REACTIONS (2)
  - Pathogen resistance [None]
  - Blood HIV RNA increased [None]

NARRATIVE: CASE EVENT DATE: 20240618
